FAERS Safety Report 14822387 (Version 2)
Quarter: 2018Q2

REPORT INFORMATION
  Report Type: Spontaneous
  Country: US (occurrence: US)
  Receive Date: 20180427
  Receipt Date: 20180521
  Transmission Date: 20180711
  Serious: Yes (Hospitalization)
  Sender: FDA-Public Use
  Company Number: US-ACORDA-ACO_149283_2018

PATIENT
  Sex: Female

DRUGS (2)
  1. AMPYRA [Suspect]
     Active Substance: DALFAMPRIDINE
     Indication: GAIT DISTURBANCE
     Dosage: 10 MG, QD
     Route: 048
  2. AMPYRA [Suspect]
     Active Substance: DALFAMPRIDINE
     Indication: MULTIPLE SCLEROSIS
     Dosage: 10 MG, Q 12 HRS

REACTIONS (8)
  - Influenza [Unknown]
  - Therapy cessation [Recovered/Resolved]
  - Dehydration [Unknown]
  - Impaired self-care [Unknown]
  - Anger [Unknown]
  - Multiple sclerosis [Unknown]
  - Disease progression [Unknown]
  - Inappropriate schedule of drug administration [Unknown]
